FAERS Safety Report 5401070-4 (Version None)
Quarter: 2007Q3

REPORT INFORMATION
  Report Type: 
  Country: None (occurrence: None)
  Receive Date: 20070731
  Receipt Date: 20070720
  Transmission Date: 20080115
  Serious: Yes (Hospitalization)
  Sender: FDA-Public Use
  Company Number: SE-BAXTER-2007BH004777

PATIENT
  Age: 65 Year
  Sex: Male
  Weight: 80 kg

DRUGS (7)
  1. IMMUNE GLOBULIN INTRAVENOUS (HUMAN) [Suspect]
     Indication: HIV INFECTION
     Route: 042
     Dates: start: 20070312, end: 20070316
  2. IMMUNE GLOBULIN INTRAVENOUS (HUMAN) [Suspect]
     Route: 042
     Dates: start: 20070312, end: 20070316
  3. IMMUNE GLOBULIN INTRAVENOUS (HUMAN) [Suspect]
     Route: 042
     Dates: start: 20070312, end: 20070316
  4. IMMUNE GLOBULIN INTRAVENOUS (HUMAN) [Suspect]
     Route: 042
     Dates: start: 20070312, end: 20070316
  5. IMMUNE GLOBULIN INTRAVENOUS (HUMAN) [Suspect]
     Route: 042
     Dates: start: 20070312, end: 20070316
  6. STOCRIN [Concomitant]
     Indication: ACUTE HIV INFECTION
     Dosage: DOSE UNIT:UNKNOWN
     Route: 065
  7. COMBIVIR [Concomitant]
     Indication: ACUTE HIV INFECTION
     Dosage: DOSE UNIT:UNKNOWN
     Route: 065

REACTIONS (3)
  - AORTIC ANEURYSM [None]
  - PERIPHERAL ARTERY ANEURYSM [None]
  - PERIPHERAL EMBOLISM [None]
